FAERS Safety Report 5730298-9 (Version None)
Quarter: 2008Q2

REPORT INFORMATION
  Report Type: 
  Country: None (occurrence: None)
  Receive Date: 20080505
  Receipt Date: 20080505
  Transmission Date: 20081010
  Serious: Yes (Life-Threatening, Hospitalization)
  Sender: FDA-Public Use
  Company Number: None

PATIENT
  Age: 37 Year
  Sex: Male
  Weight: 79.3795 kg

DRUGS (1)
  1. ACCUTANE [Suspect]
     Indication: ACNE
     Dosage: 2 PER DAY
     Dates: start: 19950101, end: 19951029

REACTIONS (8)
  - CARDIAC DISORDER [None]
  - ERECTILE DYSFUNCTION [None]
  - FACIAL PAIN [None]
  - FEELING ABNORMAL [None]
  - GASTRIC DISORDER [None]
  - SKIN DISORDER [None]
  - SUICIDE ATTEMPT [None]
  - THINKING ABNORMAL [None]
